FAERS Safety Report 5908118-9 (Version None)
Quarter: 2008Q4

REPORT INFORMATION
  Report Type: 
  Country: None (occurrence: None)
  Receive Date: 20081003
  Receipt Date: 20080922
  Transmission Date: 20090506
  Serious: Yes (Hospitalization)
  Sender: FDA-Public Use
  Company Number: JP-ABBOTT-08P-087-0476717-00

PATIENT
  Age: 84 Year
  Sex: Male

DRUGS (2)
  1. LEUPROLIDE ACETATE [Suspect]
     Indication: PROSTATE CANCER STAGE III
     Route: 058
     Dates: start: 20060608, end: 20070809
  2. LEUPROLIDE ACETATE [Suspect]
     Dates: end: 20060511

REACTIONS (3)
  - CAROTID ARTERY STENOSIS [None]
  - HAEMOGLOBIN DECREASED [None]
  - INJECTION SITE INDURATION [None]
